FAERS Safety Report 8407917-1 (Version None)
Quarter: 2012Q2

REPORT INFORMATION
  Report Type: 
  Country: None (occurrence: None)
  Receive Date: 20120323
  Receipt Date: 20110419
  Transmission Date: 20120825
  Serious: Yes (Hospitalization, Other)
  Sender: FDA-Public Use
  Company Number: 163-21880-11042603

PATIENT
  Age: 49 Year
  Sex: Male

DRUGS (6)
  1. WARFARIN SODIUM [Concomitant]
  2. AMBIEN [Concomitant]
  3. PERCOCET [Concomitant]
  4. TYLENOL ES (PARACETAMOL) [Concomitant]
  5. REVLIMID [Suspect]
     Indication: MULTIPLE MYELOMA
     Dosage: 10 MG, 1 IN 1 D, PO ; 10 MG, 1 IN 1 D, PO
     Route: 048
     Dates: start: 20110101
  6. REVLIMID [Suspect]
     Indication: MULTIPLE MYELOMA
     Dosage: 10 MG, 1 IN 1 D, PO ; 10 MG, 1 IN 1 D, PO
     Route: 048
     Dates: start: 20090701

REACTIONS (2)
  - NEUTROPENIA [None]
  - PNEUMONIA [None]
